FAERS Safety Report 5741789-9 (Version None)
Quarter: 2008Q2

REPORT INFORMATION
  Report Type: 
  Country: None (occurrence: None)
  Receive Date: 20080519
  Receipt Date: 20080514
  Transmission Date: 20081010
  Serious: Yes (Other)
  Sender: FDA-Public Use
  Company Number: SE-BAYER-200818341GPV

PATIENT
  Age: 38 Year
  Sex: Female

DRUGS (1)
  1. BETAFERON / INTERFERON BETA POWDER AND SOLVENT FOR SOLUTION [Suspect]
     Indication: DRUG USE FOR UNKNOWN INDICATION
     Route: 058
     Dates: start: 20031001, end: 20080122

REACTIONS (1)
  - NEUTROPENIA [None]
